FAERS Safety Report 4485141-5 (Version None)
Quarter: 2004Q4

REPORT INFORMATION
  Report Type: 
  Country: None (occurrence: None)
  Receive Date: 20041026
  Receipt Date: 20031126
  Transmission Date: 20050328
  Serious: No
  Sender: FDA-Public Use
  Company Number: US-BRISTOL-MYERS SQUIBB COMPANY-12447173

PATIENT
  Age: 43 Year
  Sex: Female

DRUGS (4)
  1. GLUCOPHAGE XR [Suspect]
     Indication: DIABETES MELLITUS
     Route: 048
     Dates: start: 20030401
  2. AMARYL [Concomitant]
     Dates: start: 20030501, end: 20030601
  3. ALDACTONE [Concomitant]
  4. HYDROCHLOROTHIAZIDE [Concomitant]

REACTIONS (1)
  - ALOPECIA [None]
